FAERS Safety Report 20220523 (Version 1)
Quarter: 2021Q4

REPORT INFORMATION
  Report Type: Spontaneous
  Country: US (occurrence: None)
  Receive Date: 20211223
  Receipt Date: 20211223
  Transmission Date: 20220303
  Serious: Yes (Hospitalization, Other)
  Sender: FDA-Public Use
  Company Number: US-Hikma Pharmaceuticals USA Inc.-US-H14001-21-05408

PATIENT
  Age: 57 Year
  Sex: Female

DRUGS (1)
  1. AZACITIDINE [Suspect]
     Active Substance: AZACITIDINE
     Indication: Myeloid leukaemia
     Dosage: UNKNOWN
     Route: 041

REACTIONS (4)
  - Parainfluenzae virus infection [Recovered/Resolved]
  - Rhinovirus infection [Recovered/Resolved]
  - Splenic infarction [Recovered/Resolved]
  - Thrombosis [Recovered/Resolved]
